FAERS Safety Report 23936735 (Version 1)
Quarter: 2024Q2

REPORT INFORMATION
  Report Type: Spontaneous
  Country: US (occurrence: US)
  Receive Date: 20240604
  Receipt Date: 20240604
  Transmission Date: 20240716
  Serious: No
  Sender: FDA-Public Use
  Company Number: US-ROCHE-2033140

PATIENT
  Sex: Female

DRUGS (2)
  1. VALGANCICLOVIR [Suspect]
     Active Substance: VALGANCICLOVIR
     Indication: Liver transplant
     Dosage: ONGOING: UNKNOWN, 450MG TABLET(S): ^X2 QD^
     Route: 048
  2. VALGANCICLOVIR [Suspect]
     Active Substance: VALGANCICLOVIR
     Indication: Liver transplant
     Dosage: TAKE 2 TABLET BID
     Route: 048

REACTIONS (2)
  - Off label use [Unknown]
  - Haematological infection [Recovering/Resolving]
